FAERS Safety Report 8542475-2 (Version None)
Quarter: 2012Q3

REPORT INFORMATION
  Report Type: 
  Country: None (occurrence: None)
  Receive Date: 20120726
  Receipt Date: 20110720
  Transmission Date: 20120928
  Serious: Yes (Hospitalization)
  Sender: FDA-Public Use
  Company Number: US-ASTRAZENECA-2009SE21435

PATIENT
  Age: 28 Year
  Sex: Female

DRUGS (14)
  1. SEROQUEL [Suspect]
     Route: 048
     Dates: start: 20060809
  2. PROPOXYPHENE NAPSYLATE AND ACETAMINOPHEN [Concomitant]
     Dosage: 100-650
     Dates: start: 20060907
  3. SEROQUEL [Suspect]
     Dosage: 50-200 MG
     Route: 048
     Dates: start: 20060809, end: 20071107
  4. GEODON [Concomitant]
     Dates: start: 20080101
  5. HALDOL [Concomitant]
     Dates: start: 20090101
  6. HYDROCODONE BITARTRATE AND ACETAMINOPHEN [Concomitant]
     Dosage: 5/500
     Dates: start: 20060728
  7. ZOLOFT [Concomitant]
     Dates: start: 20070101
  8. ARTHROTEC [Concomitant]
     Dates: start: 20060928
  9. TRILEPTAL [Concomitant]
     Dates: start: 20060818
  10. ALPRAZOLAM [Concomitant]
     Dates: start: 20060907
  11. ABILIFY [Concomitant]
     Dates: start: 20080101
  12. DICLOFENAC SODIUM [Concomitant]
     Dates: start: 20060912
  13. THORAZINE [Concomitant]
     Dates: start: 20070101
  14. TRILAFON [Concomitant]
     Dates: start: 20100101

REACTIONS (8)
  - BLOOD CHOLESTEROL INCREASED [None]
  - HYPERGLYCAEMIA [None]
  - HYPERLIPIDAEMIA [None]
  - GLUCOSE TOLERANCE IMPAIRED [None]
  - SUICIDE ATTEMPT [None]
  - OBESITY [None]
  - TYPE 2 DIABETES MELLITUS [None]
  - ADVERSE DRUG REACTION [None]
